FAERS Safety Report 13861785 (Version 1)
Quarter: 2017Q3

REPORT INFORMATION
  Report Type: Report from Study
  Country: US (occurrence: US)
  Receive Date: 20170811
  Receipt Date: 20170811
  Transmission Date: 20171127
  Serious: Yes (Death)
  Sender: FDA-Public Use
  Company Number: US-VIFOR (INTERNATIONAL) INC.-VIT-2017-08538

PATIENT
  Age: 63 Year
  Sex: Male

DRUGS (16)
  1. VELTASSA [Suspect]
     Active Substance: PATIROMER
     Indication: HYPERKALAEMIA
     Route: 048
     Dates: start: 20170509
  2. ALLOPURINOL. [Concomitant]
     Active Substance: ALLOPURINOL
  3. RENVELA [Concomitant]
     Active Substance: SEVELAMER CARBONATE
  4. COUMADIN [Concomitant]
     Active Substance: WARFARIN SODIUM
  5. FLUTICASONE. [Concomitant]
     Active Substance: FLUTICASONE
  6. NEPHRO-VITE [Concomitant]
  7. LEVOTHYROXINE. [Concomitant]
     Active Substance: LEVOTHYROXINE
  8. MIRALAX [Concomitant]
     Active Substance: POLYETHYLENE GLYCOL 3350
  9. DILTIAZEM. [Concomitant]
     Active Substance: DILTIAZEM
  10. CYANOCOBALAMIN. [Concomitant]
     Active Substance: CYANOCOBALAMIN
  11. ZOLPIDEM [Concomitant]
     Active Substance: ZOLPIDEM\ZOLPIDEM TARTRATE
  12. COREG [Concomitant]
     Active Substance: CARVEDILOL
  13. HYDROCORTISONE. [Concomitant]
     Active Substance: HYDROCORTISONE
  14. PATADAY [Concomitant]
     Active Substance: OLOPATADINE HYDROCHLORIDE
  15. FUROSEMIDE. [Concomitant]
     Active Substance: FUROSEMIDE
  16. SENSIPAR [Concomitant]
     Active Substance: CINACALCET HYDROCHLORIDE

REACTIONS (2)
  - Death [Fatal]
  - Inappropriate schedule of drug administration [Unknown]

NARRATIVE: CASE EVENT DATE: 20170509
